FAERS Safety Report 19355212 (Version 1)
Quarter: 2021Q2

REPORT INFORMATION
  Report Type: Spontaneous
  Country: US (occurrence: US)
  Receive Date: 20210601
  Receipt Date: 20210601
  Transmission Date: 20210717
  Serious: Yes (Death)
  Sender: FDA-Public Use
  Company Number: None

PATIENT
  Age: 72 Year
  Sex: Female

DRUGS (15)
  1. VITAMIN D3 2,000 IU TABLETS [Concomitant]
  2. SAMSCA [Suspect]
     Active Substance: TOLVAPTAN
     Indication: HYPONATRAEMIA
     Route: 048
     Dates: start: 20210503
  3. ARIPIPRAZOLE 15MG [Concomitant]
     Active Substance: ARIPIPRAZOLE
  4. LANTUS [Concomitant]
     Active Substance: INSULIN GLARGINE
  5. CLOPIDOGREL [Concomitant]
     Active Substance: CLOPIDOGREL BISULFATE
  6. VITAMIN C 500MG TABLETS [Concomitant]
  7. OXYCODONE IR 5MG [Concomitant]
     Active Substance: OXYCODONE
  8. FURSEMIDE 20MG [Concomitant]
  9. ATORVASTATIN 40MG [Concomitant]
     Active Substance: ATORVASTATIN
  10. LACTULOSE 10G/15ML [Concomitant]
  11. NOVOLOG [Concomitant]
     Active Substance: INSULIN ASPART
  12. PANTOPRAZOLE 40MG [Concomitant]
     Active Substance: PANTOPRAZOLE SODIUM
  13. POTASSIUM CHLORIDE 20MEQ [Concomitant]
     Active Substance: POTASSIUM CHLORIDE
  14. ASPIRIN 81MG [Concomitant]
     Active Substance: ASPIRIN
  15. METOPROLOL SUCCINATE 25MG [Concomitant]
     Active Substance: METOPROLOL SUCCINATE

REACTIONS (1)
  - Death [None]

NARRATIVE: CASE EVENT DATE: 20210601
